FAERS Safety Report 7430433-0 (Version None)
Quarter: 2011Q2

REPORT INFORMATION
  Report Type: 
  Country: None (occurrence: None)
  Receive Date: 20110419
  Receipt Date: 20110419
  Transmission Date: 20111010
  Serious: Yes (Death, Life-Threatening, Hospitalization, Disabling, Congenital Anomaly, Other)
  Sender: FDA-Public Use
  Company Number: None

PATIENT
  Age: 18 Year
  Sex: Female
  Weight: 78.0187 kg

DRUGS (1)
  1. IMPLANON [Suspect]
     Indication: CONTRACEPTION
     Dosage: 68MG ONCE EVERY 3 YEARS SUBDERMAL
     Route: 059
     Dates: start: 20110415

REACTIONS (3)
  - IMPLANT SITE PAIN [None]
  - SKIN EXFOLIATION [None]
  - APPLICATION SITE BURN [None]
